FAERS Safety Report 5965386-5 (Version None)
Quarter: 2008Q4

REPORT INFORMATION
  Report Type: 
  Country: None (occurrence: None)
  Receive Date: 20081124
  Receipt Date: 20081124
  Transmission Date: 20090506
  Serious: Yes (Hospitalization)
  Sender: FDA-Public Use
  Company Number: None

PATIENT
  Age: 78 Year
  Sex: Female
  Weight: 54.4 kg

DRUGS (2)
  1. CLOPIDOGREL [Suspect]
     Dosage: 600 MG ONCE PO; 75 MG ONCE PO
     Route: 048
     Dates: start: 20081008, end: 20081008
  2. CLOPIDOGREL [Suspect]
     Dosage: 600 MG ONCE PO; 75 MG ONCE PO
     Route: 048
     Dates: start: 20081009, end: 20081009

REACTIONS (1)
  - NO ADVERSE EVENT [None]
